FAERS Safety Report 23324408 (Version 1)
Quarter: 2023Q4

REPORT INFORMATION
  Report Type: Spontaneous
  Country: IL (occurrence: IL)
  Receive Date: 20231221
  Receipt Date: 20231221
  Transmission Date: 20240110
  Serious: Yes (Death, Hospitalization, Other)
  Sender: FDA-Public Use
  Company Number: IL-ABBVIE-5551238

PATIENT
  Age: 79 Year
  Sex: Male

DRUGS (1)
  1. RINVOQ [Suspect]
     Active Substance: UPADACITINIB
     Indication: Colitis ulcerative
     Route: 048

REACTIONS (5)
  - Gastrointestinal haemorrhage [Fatal]
  - Transfusion [Unknown]
  - Shock haemorrhagic [Fatal]
  - Respiratory disorder [Fatal]
  - Duodenal ulcer haemorrhage [Unknown]
